FAERS Safety Report 4421026-8 (Version None)
Quarter: 2004Q3

REPORT INFORMATION
  Report Type: 
  Country: None (occurrence: None)
  Receive Date: 20040809
  Receipt Date: 20040729
  Transmission Date: 20050211
  Serious: Yes (Life-Threatening)
  Sender: FDA-Public Use
  Company Number: GB-GLAXOSMITHKLINE-B0341043A

PATIENT
  Age: 84 Year
  Sex: Male

DRUGS (9)
  1. AUGMENTIN '400' [Suspect]
     Dosage: 1.2G SINGLE DOSE
     Route: 042
     Dates: start: 20040708, end: 20040708
  2. PARACETAMOL [Concomitant]
     Dosage: 1G PER DAY
     Route: 048
  3. FRUSEMIDE [Concomitant]
     Dosage: 40MG PER DAY
     Route: 048
  4. LANSOPRAZOLE [Concomitant]
     Dosage: 30MG PER DAY
     Route: 048
  5. ASPIRIN [Concomitant]
     Dosage: 75MG PER DAY
     Route: 048
  6. TEMAZEPAM [Concomitant]
     Dosage: 10MG PER DAY
     Route: 048
  7. CALCIUM CARBONATE X [Concomitant]
     Dosage: 1UNIT UNKNOWN
     Route: 048
     Dates: start: 20040624
  8. VANCOMYCIN HCL [Concomitant]
     Dosage: 125MG PER DAY
     Route: 048
     Dates: start: 20040707
  9. ENOXAPARIN SODIUM [Concomitant]
     Dosage: 120MG PER DAY
     Route: 058
     Dates: start: 20040708

REACTIONS (5)
  - AGITATION [None]
  - COUGH [None]
  - DYSPNOEA [None]
  - ERYTHEMA [None]
  - RASH [None]
